FAERS Safety Report 13592052 (Version 1)
Quarter: 2017Q2

REPORT INFORMATION
  Report Type: Spontaneous
  Country: DE (occurrence: DE)
  Receive Date: 20170529
  Receipt Date: 20170529
  Transmission Date: 20170830
  Serious: Yes (Other)
  Sender: FDA-Public Use
  Company Number: PHHY2017DE067705

PATIENT
  Age: 34 Month
  Sex: Female

DRUGS (1)
  1. TIMOX [Suspect]
     Active Substance: OXCARBAZEPINE
     Indication: EPILEPSY
     Dosage: 4 ML, BID (480 MG)
     Route: 065

REACTIONS (4)
  - Middle insomnia [Unknown]
  - Hyperhidrosis [Unknown]
  - Panic attack [Unknown]
  - Drug administered to patient of inappropriate age [Unknown]
